FAERS Safety Report 9102767 (Version 4)
Quarter: 2013Q4

REPORT INFORMATION
  Report Type: Spontaneous
  Country: FR (occurrence: FR)
  Receive Date: 20130219
  Receipt Date: 20131105
  Transmission Date: 20140711
  Serious: Yes (Life-Threatening)
  Sender: FDA-Public Use
  Company Number: FR-PFIZER INC-2013059628

PATIENT
  Age: 66 Year
  Sex: Female

DRUGS (10)
  1. AMLOR [Suspect]
     Dosage: 10 MG, 1X/DAY
     Route: 048
     Dates: end: 20121226
  2. LOSARTAN POTASSIUM [Suspect]
     Dosage: 100 MG, 1X/DAY
     Route: 048
  3. MYSOLINE [Suspect]
     Dosage: 250 MG, 1X/DAY
     Route: 048
     Dates: start: 201007
  4. RISPERDAL [Suspect]
     Dosage: 2 MG, 1X/DAY
     Route: 048
     Dates: end: 20121227
  5. ANAFRANIL [Suspect]
     Dosage: UNK
     Route: 042
     Dates: start: 20121223, end: 20121226
  6. DEPAKINE CHRONO [Suspect]
     Dosage: 500 MG, 1X/DAY
     Route: 048
     Dates: start: 2010
  7. SERESTA [Suspect]
     Dosage: 25 MG, 1X/DAY
     Route: 048
  8. ATENOLOL [Suspect]
     Dosage: 50 MG, 1X/DAY
     Route: 048
  9. LEVOTHYROX [Suspect]
     Dosage: 75 UG, 1X/DAY
     Route: 048
  10. KARDEGIC [Suspect]
     Dosage: 75 MG, 1X/DAY
     Route: 048

REACTIONS (1)
  - Posterior reversible encephalopathy syndrome [Recovered/Resolved]
